FAERS Safety Report 16416699 (Version 2)
Quarter: 2019Q2

REPORT INFORMATION
  Report Type: Spontaneous
  Country: SI (occurrence: SI)
  Receive Date: 20190611
  Receipt Date: 20190617
  Transmission Date: 20190711
  Serious: Yes (Hospitalization, Other)
  Sender: FDA-Public Use
  Company Number: SI-PFIZER INC-2019246058

PATIENT
  Age: 25 Year
  Sex: Female

DRUGS (2)
  1. INFLIXIMAB PFIZER [Suspect]
     Active Substance: INFLIXIMAB
     Indication: COLITIS ULCERATIVE
     Dosage: 10 MG/KG, ON DAY 0 AND DAY 7
     Route: 065
     Dates: start: 201807
  2. INFLIXIMAB PFIZER [Suspect]
     Active Substance: INFLIXIMAB
     Dosage: 10 MG/KG, EVERY 4 WEEKS
     Route: 065

REACTIONS (4)
  - Arthritis enteropathic [Unknown]
  - Pyrexia [Unknown]
  - Off label use [Unknown]
  - Diarrhoea haemorrhagic [Unknown]

NARRATIVE: CASE EVENT DATE: 201807
